FAERS Safety Report 8178750-3 (Version None)
Quarter: 2012Q1

REPORT INFORMATION
  Report Type: 
  Country: None (occurrence: None)
  Receive Date: 20120301
  Receipt Date: 20120301
  Transmission Date: 20120608
  Serious: No
  Sender: FDA-Public Use
  Company Number: None

PATIENT
  Age: 78 Year
  Sex: Male

DRUGS (1)
  1. PROMETHAZINE [Suspect]
     Indication: VOMITING
     Dates: start: 20120126, end: 20120126

REACTIONS (4)
  - SWELLING [None]
  - SENSORY DISTURBANCE [None]
  - SKIN NECROSIS [None]
  - BLISTER [None]
